FAERS Safety Report 9852318 (Version 1)
Quarter: 2014Q1

REPORT INFORMATION
  Report Type: Spontaneous
  Country: US (occurrence: None)
  Receive Date: 20140127
  Receipt Date: 20140127
  Transmission Date: 20141002
  Serious: Yes (Hospitalization)
  Sender: FDA-Public Use
  Company Number: 20140007

PATIENT
  Age: 61 Year
  Sex: Female
  Weight: 86.18 kg

DRUGS (10)
  1. SUBSYS (FENTANYL SUBLINGUAL SPRAY) 200MCG, INSYS THERAPEUTICS [Suspect]
     Indication: SPINAL DISORDER
     Dosage: 20MCG, SL
     Dates: start: 20130423, end: 20140102
  2. SUBSYS (FENTANYL SUBLINGUAL SPRAY) 200MCG, INSYS THERAPEUTICS [Suspect]
     Indication: NEOPLASM
     Dosage: 20MCG, SL
     Dates: start: 20130423, end: 20140102
  3. VERAPAMIL [Suspect]
     Indication: MIGRAINE
  4. OXYCONTIN 20MG [Concomitant]
  5. METFORMIN 100MG [Concomitant]
  6. LOSARTIN 100MG [Concomitant]
  7. LEVOTHYROXINE 225 MG [Concomitant]
  8. LIDOCAINE PATCH 5% (DR. REDDY^S LABORATORIES) (LIDOCAINE) [Concomitant]
  9. BUSPIRONE 15MG [Concomitant]
  10. AMLODIPINE 10MG [Concomitant]

REACTIONS (3)
  - Loss of consciousness [None]
  - Cardiac arrest [None]
  - Pneumonia [None]
